FAERS Safety Report 10216849 (Version 1)
Quarter: 2014Q2

REPORT INFORMATION
  Report Type: Spontaneous
  Country: US (occurrence: US)
  Receive Date: 20140604
  Receipt Date: 20140604
  Transmission Date: 20141212
  Serious: No
  Sender: FDA-Public Use
  Company Number: US-009507513-1405USA002489

PATIENT
  Sex: 0

DRUGS (1)
  1. COPPERTONE WATER BABIES LOTION SPF-100+ [Suspect]
     Indication: PRODUCT USED FOR UNKNOWN INDICATION
     Dosage: UNK, QID
     Route: 061
     Dates: start: 20140413

REACTIONS (4)
  - Sunburn [Unknown]
  - Circumstance or information capable of leading to medication error [Unknown]
  - Drug ineffective [Unknown]
  - Product lot number issue [Unknown]
